FAERS Safety Report 24008600 (Version 3)
Quarter: 2024Q3

REPORT INFORMATION
  Report Type: Spontaneous
  Country: US (occurrence: US)
  Receive Date: 20240625
  Receipt Date: 20240918
  Transmission Date: 20241016
  Serious: No
  Sender: MICRO LABS
  Company Number: US-862174955-ML2024-03380

PATIENT
  Sex: Female

DRUGS (1)
  1. TRAVOPROST [Suspect]
     Active Substance: TRAVOPROST
     Indication: Glaucoma
     Dosage: ONE DROP IN EACH EYE
     Route: 047
     Dates: start: 20240531

REACTIONS (3)
  - Product container issue [Unknown]
  - Product dose omission issue [Unknown]
  - No adverse event [Unknown]

NARRATIVE: CASE EVENT DATE: 20240531
